FAERS Safety Report 6367644-1 (Version None)
Quarter: 2009Q3

REPORT INFORMATION
  Report Type: 
  Country: None (occurrence: None)
  Receive Date: 20090921
  Receipt Date: 20090911
  Transmission Date: 20100115
  Serious: Yes (Other)
  Sender: FDA-Public Use
  Company Number: US-ROCHE-647200

PATIENT
  Sex: Female
  Weight: 75.8 kg

DRUGS (1)
  1. CAPECITABINE [Suspect]
     Dosage: 2 TABS IN AM AND 2 TABS IN PM
     Route: 048
     Dates: start: 20090717, end: 20090911

REACTIONS (6)
  - CONSTIPATION [None]
  - COUGH [None]
  - DRUG EFFECT DECREASED [None]
  - LUNG DISORDER [None]
  - PAIN [None]
  - RIB FRACTURE [None]
